FAERS Safety Report 14912483 (Version 2)
Quarter: 2018Q2

REPORT INFORMATION
  Report Type: Spontaneous
  Country: US (occurrence: US)
  Receive Date: 20180518
  Receipt Date: 20180531
  Transmission Date: 20180711
  Serious: Yes (Hospitalization, Other)
  Sender: FDA-Public Use
  Company Number: US-VERICEL CORPORATION-VCEL-2017-001222

PATIENT
  Age: 17 Year
  Sex: Female

DRUGS (1)
  1. MACI [Suspect]
     Active Substance: AUTOLOGOUS CULTURED CHONDROCYTES\SUS SCROFA COLLAGEN
     Indication: PRODUCT USED FOR UNKNOWN INDICATION
     Dosage: UNK
     Route: 065
     Dates: start: 20171130

REACTIONS (8)
  - White blood cell count increased [Unknown]
  - Joint effusion [Unknown]
  - Arthropathy [Unknown]
  - Off label use [Unknown]
  - Inflammation [Unknown]
  - Feeling abnormal [Unknown]
  - Arthralgia [Unknown]
  - Autoimmune disorder [Unknown]

NARRATIVE: CASE EVENT DATE: 20171130
